FAERS Safety Report 17774270 (Version 1)
Quarter: 2020Q2

REPORT INFORMATION
  Report Type: Spontaneous
  Country: EC (occurrence: EC)
  Receive Date: 20200513
  Receipt Date: 20200513
  Transmission Date: 20200714
  Serious: Yes (Other)
  Sender: FDA-Public Use
  Company Number: EC-US-PROVELL PHARMACEUTICALS LLC-9160625

PATIENT
  Sex: Female

DRUGS (2)
  1. EUTHYROX [Suspect]
     Active Substance: LEVOTHYROXINE SODIUM
     Indication: HYPERTHYROIDISM
  2. EUTHYROX [Suspect]
     Active Substance: LEVOTHYROXINE SODIUM
     Dosage: DOSE REDUCED

REACTIONS (4)
  - Hypothyroidism [Unknown]
  - Onychoclasis [Unknown]
  - Insomnia [Recovering/Resolving]
  - Alopecia [Unknown]
